FAERS Safety Report 17776168 (Version 2)
Quarter: 2020Q2

REPORT INFORMATION
  Report Type: Spontaneous
  Country: US (occurrence: US)
  Receive Date: 20200513
  Receipt Date: 20200514
  Transmission Date: 20200714
  Serious: No
  Sender: FDA-Public Use
  Company Number: US-PFIZER INC-2020190224

PATIENT
  Age: 54 Year
  Sex: Female
  Weight: 56.25 kg

DRUGS (6)
  1. CORTEF [Suspect]
     Active Substance: HYDROCORTISONE
     Dosage: 5 MG
  2. CORTEF [Suspect]
     Active Substance: HYDROCORTISONE
     Dosage: 10 MG
  3. CORTEF [Suspect]
     Active Substance: HYDROCORTISONE
     Dosage: 10 MG, 2X/DAY
     Route: 048
  4. LEVOTHYROXINE. [Concomitant]
     Active Substance: LEVOTHYROXINE
     Indication: THYROID DISORDER
     Dosage: 25 UG, 1X/DAY
  5. CORTEF [Suspect]
     Active Substance: HYDROCORTISONE
     Indication: ADRENAL INSUFFICIENCY
     Dosage: 10 MG
  6. CORTEF [Suspect]
     Active Substance: HYDROCORTISONE
     Dosage: 5 MG

REACTIONS (2)
  - Thinking abnormal [Not Recovered/Not Resolved]
  - Blood pressure decreased [Unknown]

NARRATIVE: CASE EVENT DATE: 202004
